FAERS Safety Report 16099705 (Version 1)
Quarter: 2019Q1

REPORT INFORMATION
  Report Type: Report from Study
  Country: None (occurrence: CA)
  Receive Date: 20190321
  Receipt Date: 20190321
  Transmission Date: 20190418
  Serious: Yes (Other)
  Sender: FDA-Public Use
  Company Number: CA-ABBVIE-19K-028-2702539-00

PATIENT
  Age: 44 Year
  Sex: Male

DRUGS (1)
  1. HUMIRA [Suspect]
     Active Substance: ADALIMUMAB
     Indication: CROHN^S DISEASE
     Route: 058
     Dates: start: 20171117

REACTIONS (5)
  - Haemorrhage [Recovered/Resolved]
  - Abnormal faeces [Recovering/Resolving]
  - Defaecation urgency [Recovering/Resolving]
  - Abdominal pain [Recovering/Resolving]
  - Proctitis [Unknown]

NARRATIVE: CASE EVENT DATE: 201809
